FAERS Safety Report 9965050 (Version 1)
Quarter: 2014Q1

REPORT INFORMATION
  Report Type: Report from Study
  Country: US (occurrence: US)
  Receive Date: 20140305
  Receipt Date: 20140305
  Transmission Date: 20141002
  Serious: No
  Sender: FDA-Public Use
  Company Number: US-ABBVIE-13P-163-1128016-00

PATIENT
  Age: 21 Year
  Sex: Female
  Weight: 60.84 kg

DRUGS (6)
  1. HUMIRA [Suspect]
     Indication: PSORIASIS
     Route: 058
     Dates: start: 20130103, end: 201304
  2. HUMIRA [Suspect]
     Route: 058
     Dates: start: 201305
  3. LEXAPRO [Concomitant]
     Indication: ANXIETY
  4. SRONYX [Concomitant]
     Indication: CONTRACEPTION
  5. ALBUTEROL [Concomitant]
     Indication: ASTHMA
     Dosage: PRN
  6. ADDERALL [Concomitant]
     Indication: ATTENTION DEFICIT/HYPERACTIVITY DISORDER

REACTIONS (3)
  - Injection site erythema [Not Recovered/Not Resolved]
  - Injection site swelling [Not Recovered/Not Resolved]
  - Injection site pruritus [Not Recovered/Not Resolved]
